FAERS Safety Report 12253516 (Version 1)
Quarter: 2016Q2

REPORT INFORMATION
  Report Type: Spontaneous
  Country: US (occurrence: None)
  Receive Date: 20160408
  Receipt Date: 20160408
  Transmission Date: 20160815
  Serious: No
  Sender: FDA-Public Use
  Company Number: None

PATIENT
  Age: 55 Year
  Sex: Female

DRUGS (27)
  1. CEPHALEXIN. [Concomitant]
     Active Substance: CEPHALEXIN
  2. CIPROFLOXACN [Concomitant]
     Active Substance: CIPROFLOXACIN
  3. GENERLAC [Concomitant]
     Active Substance: LACTULOSE
  4. IBRANCE [Suspect]
     Active Substance: PALBOCICLIB
     Indication: BREAST CANCER
     Route: 048
     Dates: start: 20160317
  5. ANASTROZOLE. [Concomitant]
     Active Substance: ANASTROZOLE
  6. CARISOPRODOL. [Concomitant]
     Active Substance: CARISOPRODOL
  7. FLUTICASONE [Concomitant]
     Active Substance: FLUTICASONE\FLUTICASONE PROPIONATE
  8. GAVALYTE-G [Concomitant]
  9. LORATADINE. [Concomitant]
     Active Substance: LORATADINE
  10. METHYLPRED [Concomitant]
     Active Substance: METHYLPREDNISOLONE
  11. METRONIDAZOL [Concomitant]
     Active Substance: METRONIDAZOLE
  12. PREDNISONE. [Concomitant]
     Active Substance: PREDNISONE
  13. AMOXICILLIN. [Concomitant]
     Active Substance: AMOXICILLIN
  14. LEVOFLOXACIN. [Concomitant]
     Active Substance: LEVOFLOXACIN
  15. SIMETHICONE (DIMETHICONE) [Concomitant]
     Active Substance: DIMETHICONE
  16. ANUCORT-HC [Concomitant]
     Active Substance: HYDROCORTISONE ACETATE
  17. GABAPENTIN. [Concomitant]
     Active Substance: GABAPENTIN
  18. OXYBUTYNIN [Concomitant]
     Active Substance: OXYBUTYNIN
  19. VITAMIN D [Concomitant]
     Active Substance: CHOLECALCIFEROL
  20. PROMETHAZINE [Concomitant]
     Active Substance: PROMETHAZINE\PROMETHAZINE HYDROCHLORIDE
  21. AMOXK CLAV [Concomitant]
  22. BACITR ZINC [Concomitant]
  23. DOOQLACE [Concomitant]
  24. HYDROCO/APAP [Concomitant]
     Active Substance: ACETAMINOPHEN\HYDROCODONE
  25. HYDROCHLOROT [Concomitant]
     Active Substance: HYDROCHLOROTHIAZIDE
  26. KETOROLAC [Concomitant]
     Active Substance: KETOROLAC\KETOROLAC TROMETHAMINE
  27. OMEPRAZOLE. [Concomitant]
     Active Substance: OMEPRAZOLE

REACTIONS (2)
  - Chills [None]
  - Pyrexia [None]

NARRATIVE: CASE EVENT DATE: 201603
